FAERS Safety Report 6843752-3 (Version None)
Quarter: 2010Q3

REPORT INFORMATION
  Report Type: 
  Country: None (occurrence: None)
  Receive Date: 20100715
  Receipt Date: 20100713
  Transmission Date: 20110219
  Serious: Yes (Other)
  Sender: FDA-Public Use
  Company Number: US-BRISTOL-MYERS SQUIBB COMPANY-15190887

PATIENT
  Age: 63 Year
  Sex: Female

DRUGS (2)
  1. METFORMIN HCL + GLIPIZIDE [Suspect]
     Dosage: METFORMIN HCL + GLIPIZIDE TABS
  2. GLIMEPIRIDE [Suspect]

REACTIONS (4)
  - AGITATION [None]
  - ANXIETY [None]
  - CHEST PAIN [None]
  - DYSPNOEA [None]
